FAERS Safety Report 6095209-8 (Version None)
Quarter: 2009Q1

REPORT INFORMATION
  Report Type: 
  Country: None (occurrence: None)
  Receive Date: 20090227
  Receipt Date: 20080207
  Transmission Date: 20090719
  Serious: No
  Sender: FDA-Public Use
  Company Number: A0709158A

PATIENT
  Sex: Female

DRUGS (1)
  1. LAMICTAL [Suspect]
     Dosage: 300MG PER DAY
     Route: 048
     Dates: start: 20071001

REACTIONS (3)
  - PRURITUS [None]
  - RASH [None]
  - VOMITING [None]
